FAERS Safety Report 11360055 (Version 10)
Quarter: 2018Q4

REPORT INFORMATION
  Report Type: Report from Study
  Country: PL (occurrence: PL)
  Receive Date: 20150810
  Receipt Date: 20181220
  Transmission Date: 20190204
  Serious: Yes (Other)
  Sender: FDA-Public Use
  Company Number: PL-ROCHE-1613736

PATIENT
  Age: 51 Year
  Sex: Male

DRUGS (42)
  1. BENDAMUSTINE [Suspect]
     Active Substance: BENDAMUSTINE
     Dosage: CYCLE 3, DAY 2
     Route: 042
     Dates: start: 20150312, end: 20150312
  2. PARACETAMOL [Concomitant]
     Active Substance: ACETAMINOPHEN
     Route: 048
     Dates: start: 20150311, end: 20150311
  3. ENCORTON [Concomitant]
     Active Substance: PREDNISONE
     Route: 048
     Dates: start: 20150703, end: 20150707
  4. PARACETAMOL [Concomitant]
     Active Substance: ACETAMINOPHEN
     Route: 048
     Dates: start: 20150107, end: 20150107
  5. PARACETAMOL [Concomitant]
     Active Substance: ACETAMINOPHEN
     Route: 048
     Dates: start: 20150114, end: 20150114
  6. ENCORTON [Concomitant]
     Active Substance: PREDNISONE
     Route: 048
     Dates: start: 20150708, end: 20150712
  7. ENCORTON [Concomitant]
     Active Substance: PREDNISONE
     Route: 048
     Dates: start: 20150713, end: 20150717
  8. ACC [Concomitant]
     Active Substance: ACETYLCYSTEINE
     Route: 048
     Dates: start: 20151229, end: 20160104
  9. CONCOR [Concomitant]
     Active Substance: BISOPROLOL FUMARATE
     Route: 048
     Dates: start: 20150827, end: 20150827
  10. IMMUNE GLOBULIN NOS [Concomitant]
     Active Substance: IMMUNE GLOBULIN NOS
     Route: 042
     Dates: start: 20180824
  11. CLEMASTINE [Concomitant]
     Active Substance: CLEMASTINE
     Indication: PROPHYLAXIS
  12. BENDAMUSTINE [Suspect]
     Active Substance: BENDAMUSTINE
     Dosage: CYCLE 2 DAY 1
     Route: 042
     Dates: start: 20150211, end: 20150211
  13. CIPHIN [Concomitant]
     Active Substance: BENZYL ALCOHOL\CIPROFLOXACIN HYDROCHLORIDE\HYDROCORTISONE
     Route: 048
     Dates: start: 20170515, end: 20170528
  14. CLEMASTINE [Concomitant]
     Active Substance: CLEMASTINE
     Indication: PREMEDICATION
     Route: 042
     Dates: start: 20170922
  15. OBINUTUZUMAB. [Suspect]
     Active Substance: OBINUTUZUMAB
     Indication: CHRONIC LYMPHOCYTIC LEUKAEMIA
     Dosage: CYCLE 1, DAY 1, LAST DOSE PRIOR TO SAE WAS TAKEN ON 11/MAR/2015
     Route: 042
     Dates: start: 20141231, end: 20141231
  16. OBINUTUZUMAB. [Suspect]
     Active Substance: OBINUTUZUMAB
     Dosage: CYCLE 1, DAY 8
     Route: 042
     Dates: start: 20150107, end: 20150107
  17. BENDAMUSTINE [Suspect]
     Active Substance: BENDAMUSTINE
     Dosage: CYCLE 2 DAY 2, TEMPORARILY INTERRUPTED
     Route: 042
     Dates: start: 20150212, end: 20150212
  18. ENCORTON [Concomitant]
     Active Substance: PREDNISONE
     Route: 048
     Dates: start: 20150409, end: 20150702
  19. ENCORTON [Concomitant]
     Active Substance: PREDNISONE
     Route: 065
     Dates: start: 20170323
  20. ENCORTON [Concomitant]
     Active Substance: PREDNISONE
     Route: 048
     Dates: start: 20150409, end: 20150702
  21. BIOTYK [Concomitant]
     Indication: PROPHYLAXIS
     Route: 048
     Dates: start: 20170115, end: 20170214
  22. OBINUTUZUMAB. [Suspect]
     Active Substance: OBINUTUZUMAB
     Dosage: CYCLE 1, DAY 2
     Route: 042
     Dates: start: 20150101, end: 20150101
  23. PARACETAMOL [Concomitant]
     Active Substance: ACETAMINOPHEN
     Route: 048
     Dates: start: 20150211, end: 20150211
  24. VITAMIN D3 [Concomitant]
     Active Substance: CHOLECALCIFEROL
     Indication: PROPHYLAXIS
     Route: 048
     Dates: start: 20150828
  25. FROMILID UNO [Concomitant]
     Active Substance: CLARITHROMYCIN
     Route: 048
     Dates: start: 20151229, end: 20160104
  26. OBINUTUZUMAB. [Suspect]
     Active Substance: OBINUTUZUMAB
     Dosage: CYCLE 1, DAY 15
     Route: 042
     Dates: start: 20150114, end: 20150114
  27. BENDAMUSTINE [Suspect]
     Active Substance: BENDAMUSTINE
     Dosage: CYCLE 3, DAY 1,
     Route: 042
     Dates: start: 20150311, end: 20150311
  28. CONTROLOC [Concomitant]
     Active Substance: PANTOPRAZOLE SODIUM
     Route: 048
     Dates: start: 20160217
  29. CONCOR [Concomitant]
     Active Substance: BISOPROLOL FUMARATE
     Route: 048
     Dates: start: 20150828
  30. IMMUNE GLOBULIN NOS [Concomitant]
     Active Substance: IMMUNE GLOBULIN NOS
     Indication: PROPHYLAXIS
     Route: 042
     Dates: start: 20170922
  31. OBINUTUZUMAB. [Suspect]
     Active Substance: OBINUTUZUMAB
     Dosage: CYCLE 3, DAY 1
     Route: 042
     Dates: start: 20150311, end: 20150311
  32. BENDAMUSTINE [Suspect]
     Active Substance: BENDAMUSTINE
     Indication: CHRONIC LYMPHOCYTIC LEUKAEMIA
     Dosage: CYCLE 1 DAY 1, LAST DOSE PRIOR TO SAE WAS TAKEN ON 12/MAR/2015
     Route: 042
     Dates: start: 20141231, end: 20141231
  33. PARACETAMOL [Concomitant]
     Active Substance: ACETAMINOPHEN
     Route: 048
     Dates: start: 20141231, end: 20150104
  34. PARACETAMOL [Concomitant]
     Active Substance: ACETAMINOPHEN
     Route: 048
     Dates: start: 20170922
  35. DANAZOL. [Concomitant]
     Active Substance: DANAZOL
     Route: 048
     Dates: start: 20150128, end: 20150702
  36. ENCORTON [Concomitant]
     Active Substance: PREDNISONE
     Route: 048
     Dates: start: 20150212, end: 20150408
  37. IMMUNE GLOBULIN NOS [Concomitant]
     Active Substance: IMMUNE GLOBULIN NOS
     Route: 042
     Dates: start: 20171117, end: 20180504
  38. HYDROCORTISON [Concomitant]
     Active Substance: HYDROCORTISONE
     Indication: PREMEDICATION
     Route: 042
     Dates: start: 20170922
  39. OBINUTUZUMAB. [Suspect]
     Active Substance: OBINUTUZUMAB
     Dosage: CYCLE 2, DAY 1
     Route: 042
     Dates: start: 20150211, end: 20150211
  40. BENDAMUSTINE [Suspect]
     Active Substance: BENDAMUSTINE
     Dosage: CYCLE 1 DAY 2
     Route: 042
     Dates: start: 20150101, end: 20150101
  41. DANAZOL. [Concomitant]
     Active Substance: DANAZOL
     Route: 048
     Dates: start: 20150703, end: 20150707
  42. IMMUNE GLOBULIN NOS [Concomitant]
     Active Substance: IMMUNE GLOBULIN NOS
     Route: 042
     Dates: start: 20180530, end: 20180726

REACTIONS (1)
  - Interstitial lung disease [Not Recovered/Not Resolved]

NARRATIVE: CASE EVENT DATE: 20150707
